FAERS Safety Report 11802495 (Version 1)
Quarter: 2015Q4

REPORT INFORMATION
  Report Type: Report from Study
  Country: JP (occurrence: JP)
  Receive Date: 20151204
  Receipt Date: 20151204
  Transmission Date: 20160305
  Serious: Yes (Hospitalization)
  Sender: FDA-Public Use
  Company Number: JP-DSJP-DSJ-2015-128410

PATIENT

DRUGS (14)
  1. EDOXABAN [Suspect]
     Active Substance: EDOXABAN TOSYLATE
     Indication: DEEP VEIN THROMBOSIS
  2. VERAPAMIL HYDROCHLORIDE. [Concomitant]
     Active Substance: VERAPAMIL HYDROCHLORIDE
     Dosage: 160MG/DAY
     Route: 048
     Dates: end: 20150615
  3. DAIKENCHUTO [Concomitant]
     Active Substance: HERBALS
     Dosage: 7.5G/DAY
     Route: 048
  4. DILTIAZEM HYDROCHLORIDE R [Concomitant]
     Active Substance: DILTIAZEM HYDROCHLORIDE
     Dosage: 200MG/DAY
     Route: 048
     Dates: start: 20150620
  5. LAXOBERON [Concomitant]
     Active Substance: SODIUM PICOSULFATE
     Dosage: 10-15DROPS/DAY
     Route: 048
     Dates: start: 20150601
  6. LANIRAPID [Concomitant]
     Active Substance: METILDIGOXIN
     Dosage: 0.05MG/DAY
     Route: 048
     Dates: end: 20150615
  7. GLYCYRON                           /00466401/ [Concomitant]
     Dosage: 6DF/DAY
     Route: 048
     Dates: start: 20150518
  8. LUPRAC [Concomitant]
     Active Substance: TORSEMIDE
     Dosage: 4MG/DAY
     Route: 048
     Dates: start: 20150616
  9. DILTIAZEM HYDROCHLORIDE. [Concomitant]
     Active Substance: DILTIAZEM HYDROCHLORIDE
     Dosage: 100MG/DAY
     Route: 042
     Dates: start: 20150615, end: 20150617
  10. NU-LOTAN [Concomitant]
     Active Substance: LOSARTAN POTASSIUM
     Dosage: 25MG/DAY
     Route: 048
     Dates: start: 20150616
  11. EDOXABAN [Suspect]
     Active Substance: EDOXABAN TOSYLATE
     Indication: PULMONARY EMBOLISM
     Dosage: 30 MG, QD
     Route: 048
     Dates: start: 20150601
  12. UFT [Concomitant]
     Active Substance: TEGAFUR\URACIL
     Dosage: 400MG/DAY
     Route: 048
  13. UZEL [Concomitant]
     Active Substance: LEUCOVORIN CALCIUM
     Dosage: 75MG/DAY
     Route: 048
  14. MAINTATE [Concomitant]
     Active Substance: BISOPROLOL FUMARATE
     Dosage: 2.5MG/DAY
     Route: 048
     Dates: start: 20150616

REACTIONS (2)
  - Blood urine present [Recovering/Resolving]
  - Cardiac failure congestive [Recovered/Resolved]

NARRATIVE: CASE EVENT DATE: 20150615
